FAERS Safety Report 7367352-4 (Version None)
Quarter: 2011Q1

REPORT INFORMATION
  Report Type: 
  Country: None (occurrence: None)
  Receive Date: 20110322
  Receipt Date: 20110318
  Transmission Date: 20110831
  Serious: Yes (Other)
  Sender: FDA-Public Use
  Company Number: AU-PFIZER INC-2011047075

PATIENT
  Age: 74 Year
  Sex: Male
  Weight: 103 kg

DRUGS (4)
  1. TRITACE [Concomitant]
     Indication: HYPERTENSION
     Dosage: 10 MG, 1X/DAY
     Route: 048
  2. CADUET [Suspect]
     Indication: DYSLIPIDAEMIA
  3. CADUET [Suspect]
     Indication: BLOOD PRESSURE
     Dosage: 5/40MG, 1X/DAY
     Route: 048
     Dates: start: 20110125, end: 20110201
  4. ENDEP [Concomitant]
     Indication: INSOMNIA
     Dosage: 10 MG, 1X/DAY, NOCTE
     Dates: start: 20110125

REACTIONS (1)
  - RENAL IMPAIRMENT [None]
